FAERS Safety Report 10672564 (Version 1)
Quarter: 2014Q4

REPORT INFORMATION
  Report Type: Spontaneous
  Country: US (occurrence: None)
  Receive Date: 20141222
  Receipt Date: 20141222
  Transmission Date: 20150529
  Serious: No
  Sender: FDA-Public Use
  Company Number: None

PATIENT
  Age: 51 Year
  Sex: Female

DRUGS (1)
  1. STELARA [Suspect]
     Active Substance: USTEKINUMAB
     Indication: PSORIASIS
     Dosage: Q 12 WEEKS
     Route: 058
     Dates: start: 20110517, end: 20141219

REACTIONS (1)
  - Psoriatic arthropathy [None]

NARRATIVE: CASE EVENT DATE: 20141219
